FAERS Safety Report 21811233 (Version 1)
Quarter: 2023Q1

REPORT INFORMATION
  Report Type: Report from Study
  Country: US (occurrence: US)
  Receive Date: 20230103
  Receipt Date: 20230103
  Transmission Date: 20230418
  Serious: No
  Sender: FDA-Public Use
  Company Number: US-ABBVIE-4213983

PATIENT
  Sex: Female

DRUGS (3)
  1. SKYRIZI [Suspect]
     Active Substance: RISANKIZUMAB-RZAA
     Indication: Psoriasis
     Route: 058
  2. JANSSEN COVID-19 VACCINE [Concomitant]
     Active Substance: AD26.COV2.S
     Indication: COVID-19 immunisation
     Dosage: 1ST DOSE, FREQUENCY - ONE IN ONCE
     Route: 030
     Dates: start: 20211113, end: 20211113
  3. JANSSEN COVID-19 VACCINE [Concomitant]
     Active Substance: AD26.COV2.S
     Indication: COVID-19 immunisation
     Dosage: 2ND DOSE, FREQUENCY - ONE IN ONCE
     Route: 030
     Dates: start: 20211213, end: 20211213

REACTIONS (2)
  - Skin ulcer [Not Recovered/Not Resolved]
  - Solar lentigo [Not Recovered/Not Resolved]
